FAERS Safety Report 7766374-9 (Version None)
Quarter: 2011Q3

REPORT INFORMATION
  Report Type: 
  Country: None (occurrence: None)
  Receive Date: 20110922
  Receipt Date: 20110912
  Transmission Date: 20111222
  Serious: No
  Sender: FDA-Public Use
  Company Number: US-BIOGENIDEC-2011BI035023

PATIENT
  Age: 45 Year
  Sex: Female

DRUGS (2)
  1. AVONEX [Concomitant]
     Indication: MULTIPLE SCLEROSIS
     Route: 030
  2. TYSABRI [Suspect]
     Indication: MULTIPLE SCLEROSIS
     Route: 042
     Dates: start: 20080819, end: 20110609

REACTIONS (8)
  - ASTHMA [None]
  - OPHTHALMOLOGICAL EXAMINATION ABNORMAL [None]
  - FATIGUE [None]
  - WHITE BLOOD CELL COUNT INCREASED [None]
  - HEADACHE [None]
  - SINUSITIS [None]
  - GAIT DISTURBANCE [None]
  - MULTIPLE SCLEROSIS RELAPSE [None]
